FAERS Safety Report 9047225 (Version 1)
Quarter: 2013Q1

REPORT INFORMATION
  Report Type: Report from Study
  Country: US (occurrence: US)
  Receive Date: 20130130
  Receipt Date: 20130130
  Transmission Date: 20140127
  Serious: No
  Sender: FDA-Public Use
  Company Number: US-ABBOTT-12P-163-0975296-00

PATIENT
  Sex: Female
  Weight: 86.26 kg

DRUGS (5)
  1. HUMIRA [Suspect]
     Indication: PSORIATIC ARTHROPATHY
     Route: 058
     Dates: start: 201106, end: 201205
  2. HUMIRA [Suspect]
     Route: 058
     Dates: start: 201205
  3. LEVOTHYROXINE [Concomitant]
     Indication: HYPOTHYROIDISM
  4. ALBUTEROL [Concomitant]
     Indication: ASTHMA
  5. ADVAIR [Concomitant]
     Indication: ASTHMA

REACTIONS (4)
  - Acne [Recovering/Resolving]
  - Sinusitis [Recovered/Resolved]
  - Sinus congestion [Recovering/Resolving]
  - Sinusitis [Recovered/Resolved]
